FAERS Safety Report 6638322-6 (Version None)
Quarter: 2010Q1

REPORT INFORMATION
  Report Type: 
  Country: None (occurrence: None)
  Receive Date: 20100317
  Receipt Date: 20100302
  Transmission Date: 20100710
  Serious: Yes (Disabling)
  Sender: FDA-Public Use
  Company Number: US-BAYER-201015634NA

PATIENT
  Age: 66 Year
  Sex: Female
  Weight: 66 kg

DRUGS (1)
  1. AVELOX [Suspect]
     Indication: DRUG USE FOR UNKNOWN INDICATION
     Route: 048
     Dates: start: 20100222

REACTIONS (2)
  - DISORIENTATION [None]
  - DIZZINESS [None]
